FAERS Safety Report 5377285-0 (Version None)
Quarter: 2007Q3

REPORT INFORMATION
  Report Type: 
  Country: None (occurrence: None)
  Receive Date: 20070703
  Receipt Date: 20070621
  Transmission Date: 20080115
  Serious: Yes (Hospitalization)
  Sender: FDA-Public Use
  Company Number: US-JNJFOC-20070604899

PATIENT
  Age: 27 Year
  Sex: Male

DRUGS (5)
  1. INFLIXIMAB [Suspect]
     Indication: CROHN'S DISEASE
     Route: 042
  2. PREDNISONE TAB [Concomitant]
  3. ASACOL [Concomitant]
  4. FLAGYL [Concomitant]
  5. PERCOCET [Concomitant]

REACTIONS (1)
  - LISTERIOSIS [None]
